FAERS Safety Report 12724963 (Version 1)
Quarter: 2016Q3

REPORT INFORMATION
  Report Type: Spontaneous
  Country: BR (occurrence: BR)
  Receive Date: 20160908
  Receipt Date: 20160908
  Transmission Date: 20161109
  Serious: Yes (Other)
  Sender: FDA-Public Use
  Company Number: PHHY2016BR122932

PATIENT
  Sex: Female

DRUGS (1)
  1. DESOGESTREL [Suspect]
     Active Substance: DESOGESTREL
     Indication: ORAL CONTRACEPTION
     Dosage: 0.075 MG, QD
     Route: 048
     Dates: start: 201511

REACTIONS (4)
  - Stress [Unknown]
  - Fear of death [Unknown]
  - Amenorrhoea [Unknown]
  - Loss of libido [Unknown]
